FAERS Safety Report 13949444 (Version 1)
Quarter: 2017Q3

REPORT INFORMATION
  Report Type: Spontaneous
  Country: US (occurrence: US)
  Receive Date: 20170908
  Receipt Date: 20170908
  Transmission Date: 20171128
  Serious: No
  Sender: FDA-Public Use
  Company Number: US-JAZZ-2017-US-009708

PATIENT
  Sex: Male

DRUGS (39)
  1. STAVZOR [Concomitant]
     Active Substance: VALPROIC ACID
  2. DOXEPIN [Concomitant]
     Active Substance: DOXEPIN
  3. HYDROCODONE BITARTRATE AND ACETAMINOPHEN [Concomitant]
     Active Substance: ACETAMINOPHEN\HYDROCODONE BITARTRATE
  4. PICAMILON [Concomitant]
  5. VALIUM [Concomitant]
     Active Substance: DIAZEPAM
  6. ZOFRAN [Concomitant]
     Active Substance: ONDANSETRON HYDROCHLORIDE
  7. VITAMINS                           /00067501/ [Concomitant]
     Active Substance: VITAMINS
  8. VIAGRA [Concomitant]
     Active Substance: SILDENAFIL CITRATE
  9. FLUMAZENIL. [Concomitant]
     Active Substance: FLUMAZENIL
  10. PROPRANOLOL [Concomitant]
     Active Substance: PROPRANOLOL HYDROCHLORIDE
  11. LIBRIUM [Concomitant]
     Active Substance: CHLORDIAZEPOXIDE HYDROCHLORIDE
  12. LAMICTAL [Concomitant]
     Active Substance: LAMOTRIGINE
  13. ZANAFLEX [Concomitant]
     Active Substance: TIZANIDINE HYDROCHLORIDE
  14. VALERIAN                           /01561601/ [Concomitant]
     Active Substance: VALERIAN
  15. NORCO [Concomitant]
     Active Substance: ACETAMINOPHEN\HYDROCODONE BITARTRATE
  16. KETOROLAC [Concomitant]
     Active Substance: KETOROLAC\KETOROLAC TROMETHAMINE
  17. B COMPLEX                          /00322001/ [Concomitant]
     Active Substance: CALCIUM PANTOTHENATE\CYANOCOBALAMIN\NIACINAMIDE\PYRIDOXINE HYDROCHLORIDE\RIBOFLAVIN\THIAMINE HYDROCHLORIDE
  18. ATIVAN [Concomitant]
     Active Substance: LORAZEPAM
  19. XYREM [Suspect]
     Active Substance: SODIUM OXYBATE
     Indication: SLEEP DISORDER
     Dosage: 3G, BID
     Route: 048
     Dates: start: 200809, end: 200810
  20. PHENOBARBITAL. [Concomitant]
     Active Substance: PHENOBARBITAL
  21. STRATTERA [Concomitant]
     Active Substance: ATOMOXETINE HYDROCHLORIDE
  22. SEROQUEL [Concomitant]
     Active Substance: QUETIAPINE FUMARATE
  23. XYREM [Suspect]
     Active Substance: SODIUM OXYBATE
     Indication: NARCOLEPSY
     Dosage: 5 G, QD
     Route: 048
     Dates: start: 200809, end: 200810
  24. XYREM [Suspect]
     Active Substance: SODIUM OXYBATE
     Dosage: 9 G, TOTAL NIGHLTY DOSE
     Route: 048
  25. BACLOFEN. [Concomitant]
     Active Substance: BACLOFEN
  26. POTASSIUM [Concomitant]
     Active Substance: POTASSIUM
  27. VISTARIL                           /00058402/ [Concomitant]
     Active Substance: HYDROXYZINE HYDROCHLORIDE
  28. GABITRIL [Concomitant]
     Active Substance: TIAGABINE HYDROCHLORIDE
  29. FOLIC ACID. [Concomitant]
     Active Substance: FOLIC ACID
  30. MELATONIN [Concomitant]
     Active Substance: MELATONIN
  31. GLUTAMINE [Concomitant]
     Active Substance: GLUTAMINE
  32. KLONOPIN [Concomitant]
     Active Substance: CLONAZEPAM
  33. NEURONTIN [Concomitant]
     Active Substance: GABAPENTIN
  34. DEPAKOTE [Concomitant]
     Active Substance: DIVALPROEX SODIUM
  35. SLOW MAG                           /01486809/ [Concomitant]
     Active Substance: MAGNESIUM
  36. TYROSINE [Concomitant]
     Active Substance: TYROSINE
  37. XYREM [Suspect]
     Active Substance: SODIUM OXYBATE
     Dosage: 2.25G, BID
     Route: 048
     Dates: start: 201211, end: 201409
  38. XYREM [Suspect]
     Active Substance: SODIUM OXYBATE
     Dosage: 2.5G, BID
     Route: 048
     Dates: start: 201610
  39. TRILEPTAL [Concomitant]
     Active Substance: OXCARBAZEPINE

REACTIONS (3)
  - Abnormal dreams [Unknown]
  - Weight decreased [Unknown]
  - Hangover [Unknown]
